FAERS Safety Report 8785256 (Version 1)
Quarter: 2012Q4

REPORT INFORMATION
  Report Type: 
  Country: US (occurrence: US)
  Receive Date: 20120914
  Receipt Date: 20120914
  Transmission Date: 20130627
  Serious: Yes (Hospitalization)
  Sender: FDA-Public Use
  Company Number: US-JNJFOC-20120903545

PATIENT
  Sex: Male
  Weight: 90.72 kg

DRUGS (1)
  1. RISPERDAL [Suspect]
     Indication: SCHIZOPHRENIA
     Dosage: 1 mg in the am and 2mg in the pm
     Route: 048
     Dates: start: 20120816

REACTIONS (3)
  - Tongue biting [Not Recovered/Not Resolved]
  - Physical assault [Not Recovered/Not Resolved]
  - Drug ineffective [Not Recovered/Not Resolved]
